FAERS Safety Report 7002742-0 (Version None)
Quarter: 2010Q3

REPORT INFORMATION
  Report Type: 
  Country: None (occurrence: None)
  Receive Date: 20100920
  Receipt Date: 20070718
  Transmission Date: 20110219
  Serious: Yes (Other)
  Sender: FDA-Public Use
  Company Number: US-ASTRAZENECA-2006UW09070

PATIENT
  Age: 48 Year
  Sex: Male

DRUGS (12)
  1. SEROQUEL [Suspect]
     Indication: BIPOLAR DISORDER
     Dosage: 25-100 MG
     Route: 048
     Dates: start: 20020930
  2. SEROQUEL [Suspect]
     Indication: DEPRESSION
     Dosage: 25-100 MG
     Route: 048
     Dates: start: 20020930
  3. SEROQUEL [Suspect]
     Dosage: 25 MG TO 200 MG
     Route: 048
     Dates: start: 20020901, end: 20030201
  4. SEROQUEL [Suspect]
     Dosage: 25 MG TO 200 MG
     Route: 048
     Dates: start: 20020901, end: 20030201
  5. RISPERDAL [Suspect]
     Indication: BIPOLAR DISORDER
     Dosage: 1 TO 3 MG
     Dates: start: 20040101
  6. RISPERDAL [Suspect]
     Indication: DEPRESSION
     Dosage: 1 TO 3 MG
     Dates: start: 20040101
  7. ZYPREXA [Suspect]
     Indication: BIPOLAR DISORDER
     Dates: start: 20031001, end: 20031201
  8. ZYPREXA [Suspect]
     Indication: DEPRESSION
     Dates: start: 20031001, end: 20031201
  9. GLUCOVAN [Concomitant]
     Dosage: 5/500 MG
     Route: 048
     Dates: start: 20020916
  10. AVANDIA [Concomitant]
     Route: 048
     Dates: start: 20021110
  11. WELLBUTRIN [Concomitant]
     Route: 048
     Dates: start: 20021022
  12. LISINOPRIL [Concomitant]
     Route: 048
     Dates: start: 20021119

REACTIONS (1)
  - PANCREATITIS [None]
